FAERS Safety Report 25796792 (Version 1)
Quarter: 2025Q3

REPORT INFORMATION
  Report Type: Spontaneous
  Country: US (occurrence: US)
  Receive Date: 20250912
  Receipt Date: 20250912
  Transmission Date: 20251021
  Serious: Yes (Hospitalization)
  Sender: ANI
  Company Number: US-ANIPHARMA-2025-US-020068

PATIENT
  Age: 52 Year
  Sex: Female
  Weight: 83.92 kg

DRUGS (15)
  1. CORTICOTROPIN [Suspect]
     Active Substance: CORTICOTROPIN
     Indication: Polymyositis
     Route: 058
     Dates: start: 2024
  2. VITAMIN D [Concomitant]
     Active Substance: VITAMIN D NOS
  3. FLONASE [Concomitant]
     Active Substance: FLUTICASONE PROPIONATE
  4. FOLIC ACID [Concomitant]
     Active Substance: FOLIC ACID
  5. ISOSORBIDE MONONITRATE [Concomitant]
     Active Substance: ISOSORBIDE MONONITRATE
  6. LEVOTHYROXINE SODIUM [Concomitant]
     Active Substance: LEVOTHYROXINE SODIUM
  7. METOPROLOL [Concomitant]
     Active Substance: METOPROLOL
  8. LISINOPRIL [Concomitant]
     Active Substance: LISINOPRIL
  9. METHOTREXATE SODIUM [Concomitant]
     Active Substance: METHOTREXATE SODIUM
  10. LOVAZA [Concomitant]
     Active Substance: OMEGA-3-ACID ETHYL ESTERS
  11. ZINC [Concomitant]
     Active Substance: ZINC
  12. CARVEDILOL [Concomitant]
     Active Substance: CARVEDILOL
  13. ALBUTEROL [Concomitant]
     Active Substance: ALBUTEROL
  14. ASPIRIN [Concomitant]
     Active Substance: ASPIRIN
  15. FENOFIBRATE [Concomitant]
     Active Substance: FENOFIBRATE

REACTIONS (2)
  - Blood pressure increased [Recovered/Resolved]
  - Contraindicated product administered [Not Recovered/Not Resolved]

NARRATIVE: CASE EVENT DATE: 20250301
